FAERS Safety Report 9095526 (Version 2)
Quarter: 2013Q1

REPORT INFORMATION
  Report Type: Spontaneous
  Country: AR (occurrence: AR)
  Receive Date: 20130220
  Receipt Date: 20130320
  Transmission Date: 20140127
  Serious: Yes (Hospitalization, Other)
  Sender: FDA-Public Use
  Company Number: PHHY2013AR016143

PATIENT
  Sex: Female

DRUGS (2)
  1. RASILEZ [Suspect]
     Indication: HYPERTENSION
     Dosage: 300 MG, UNK
  2. RASILEZ [Suspect]

REACTIONS (6)
  - Hypertension [Recovering/Resolving]
  - Diabetes mellitus [Recovering/Resolving]
  - Alopecia [Recovering/Resolving]
  - Hyperhidrosis [Recovering/Resolving]
  - Heart rate increased [Unknown]
  - Blood pressure inadequately controlled [Recovering/Resolving]
